FAERS Safety Report 9822318 (Version 1)
Quarter: 2014Q1

REPORT INFORMATION
  Report Type: Spontaneous
  Country: US (occurrence: US)
  Receive Date: 20140116
  Receipt Date: 20140116
  Transmission Date: 20141002
  Serious: No
  Sender: FDA-Public Use
  Company Number: US-009507513-1312USA012545

PATIENT
  Age: 83 Year
  Sex: Male

DRUGS (4)
  1. ZETIA [Suspect]
     Indication: BLOOD CHOLESTEROL INCREASED
     Dosage: UNK
     Route: 048
     Dates: start: 201308, end: 20131226
  2. SYNTHROID [Concomitant]
  3. WELCHOL [Concomitant]
  4. VITAMINS (UNSPECIFIED) [Concomitant]

REACTIONS (4)
  - Blood creatinine increased [Unknown]
  - Myalgia [Recovering/Resolving]
  - Muscular weakness [Unknown]
  - Oedema peripheral [Unknown]
